FAERS Safety Report 9347317 (Version 1)
Quarter: 2013Q2

REPORT INFORMATION
  Report Type: Spontaneous
  Country: BR (occurrence: BR)
  Receive Date: 20130613
  Receipt Date: 20130613
  Transmission Date: 20140414
  Serious: Yes (Hospitalization, Other)
  Sender: FDA-Public Use
  Company Number: BR-009507513-1202BRA00012

PATIENT
  Sex: Male
  Weight: 98 kg

DRUGS (13)
  1. COSOPT [Suspect]
     Indication: GLAUCOMA
     Dosage: 1 DROP IN THE RIGHT EYE, BID
     Route: 047
     Dates: start: 2001
  2. COSOPT [Suspect]
     Indication: EYE INJURY
  3. TRAVATAN [Concomitant]
     Indication: GLAUCOMA
     Dosage: UNK, UNKNOWN
  4. CAPTOPRIL [Concomitant]
     Indication: HYPERTENSION
     Dosage: 25 MG, QD
     Route: 048
     Dates: start: 2002, end: 201304
  5. ATENOLOL [Concomitant]
     Indication: HYPERTENSION
     Dosage: 50 MG, BID
     Dates: start: 201304
  6. RANITIDINE [Concomitant]
     Indication: GASTRITIS
     Dosage: UNK UNK, QD
     Route: 048
     Dates: start: 2002
  7. OMEPRAZOLE [Concomitant]
     Indication: GASTRITIS
     Dosage: 20 MG, QAM
     Dates: start: 2011
  8. CIMETIDINE [Concomitant]
     Indication: GASTRITIS
     Dosage: UNK, UNKNOWN
  9. FAMOTIDINE [Concomitant]
     Indication: GASTRITIS
     Dosage: UNK, UNKNOWN
  10. CLOPIDOGREL [Concomitant]
     Indication: ATHEROSCLEROSIS PROPHYLAXIS
     Dosage: 75 MG, QD
     Dates: start: 201304
  11. AAS [Concomitant]
     Indication: ATHEROSCLEROSIS PROPHYLAXIS
     Dosage: UNK, BID
     Dates: start: 201304
  12. SIMVASTATIN [Concomitant]
     Indication: ATHEROSCLEROSIS PROPHYLAXIS
     Dosage: UNK, QD
     Dates: start: 201304
  13. ISOSORBIDE [Concomitant]
     Dosage: 20 MG, TID
     Dates: start: 201304

REACTIONS (11)
  - Myocardial infarction [Unknown]
  - Blindness unilateral [Not Recovered/Not Resolved]
  - Corneal scar [Not Recovered/Not Resolved]
  - Vascular stent insertion [Unknown]
  - Venous occlusion [Unknown]
  - Angioplasty [Unknown]
  - Blister [Not Recovered/Not Resolved]
  - Blood pressure increased [Unknown]
  - Expired drug administered [Unknown]
  - Off label use [Unknown]
  - No adverse event [Unknown]
